FAERS Safety Report 8167228-9 (Version None)
Quarter: 2012Q1

REPORT INFORMATION
  Report Type: 
  Country: None (occurrence: None)
  Receive Date: 20120227
  Receipt Date: 20120216
  Transmission Date: 20120608
  Serious: Yes (Hospitalization)
  Sender: FDA-Public Use
  Company Number: US-JNJFOC-20120210176

PATIENT
  Sex: Male
  Weight: 58.51 kg

DRUGS (2)
  1. INFLIXIMAB, RECOMBINANT [Suspect]
     Route: 042
     Dates: start: 20070803
  2. INFLIXIMAB, RECOMBINANT [Suspect]
     Indication: CROHN'S DISEASE
     Dosage: 17TH INFLIXIMAB INFUSION
     Route: 042
     Dates: start: 20091202

REACTIONS (3)
  - ENTEROCUTANEOUS FISTULA [None]
  - ANASTOMOTIC LEAK [None]
  - INTESTINAL RESECTION [None]
